FAERS Safety Report 5410978-5 (Version None)
Quarter: 2007Q3

REPORT INFORMATION
  Report Type: 
  Country: None (occurrence: None)
  Receive Date: 20070810
  Receipt Date: 20070625
  Transmission Date: 20080115
  Serious: No
  Sender: FDA-Public Use
  Company Number: A0659958A

PATIENT
  Sex: Female

DRUGS (1)
  1. ALTABAX [Suspect]
     Indication: IMPETIGO
     Dosage: 1APP SINGLE DOSE
     Route: 061
     Dates: start: 20070601, end: 20070601

REACTIONS (2)
  - APPLICATION SITE IRRITATION [None]
  - APPLICATION SITE PARAESTHESIA [None]
